FAERS Safety Report 5590103-0 (Version None)
Quarter: 2008Q1

REPORT INFORMATION
  Report Type: 
  Country: None (occurrence: None)
  Receive Date: 20080114
  Receipt Date: 20070926
  Transmission Date: 20080703
  Serious: No
  Sender: FDA-Public Use
  Company Number: US-ABBOTT-07P-163-0419008-00

PATIENT
  Age: 2 Year
  Sex: Female

DRUGS (1)
  1. OMNICEF [Suspect]
     Indication: DRUG USE FOR UNKNOWN INDICATION
     Dosage: 250ML/   5MG-2ML
     Route: 048
     Dates: start: 20070924

REACTIONS (1)
  - RASH PAPULAR [None]
